FAERS Safety Report 19757047 (Version 2)
Quarter: 2021Q3

REPORT INFORMATION
  Report Type: Spontaneous
  Country: CA (occurrence: CA)
  Receive Date: 20210827
  Receipt Date: 20210910
  Transmission Date: 20211014
  Serious: Yes (Other)
  Sender: FDA-Public Use
  Company Number: CA-TEVA-2021-CA-1945969

PATIENT
  Age: 58 Year
  Sex: Female
  Weight: 86 kg

DRUGS (11)
  1. CEPHALEXIN. [Suspect]
     Active Substance: CEPHALEXIN
     Indication: PRODUCT USED FOR UNKNOWN INDICATION
     Dosage: 2000 MILLIGRAM DAILY;
     Route: 065
  2. TOCTINO [Suspect]
     Active Substance: ALITRETINOIN
     Indication: PRODUCT USED FOR UNKNOWN INDICATION
     Dosage: 30 MILLIGRAM DAILY;
     Route: 065
  3. CELECOXIB. [Suspect]
     Active Substance: CELECOXIB
     Indication: PRODUCT USED FOR UNKNOWN INDICATION
     Dosage: 200 MILLIGRAM DAILY;
     Route: 065
  4. PREDNISONE. [Suspect]
     Active Substance: PREDNISONE
     Indication: PRODUCT USED FOR UNKNOWN INDICATION
     Dosage: 5 MILLIGRAM DAILY;
     Route: 065
  5. ENBREL [Suspect]
     Active Substance: ETANERCEPT
     Indication: PRODUCT USED FOR UNKNOWN INDICATION
     Route: 065
  6. VALTREX [Suspect]
     Active Substance: VALACYCLOVIR HYDROCHLORIDE
     Indication: PRODUCT USED FOR UNKNOWN INDICATION
     Dosage: 500 MILLIGRAM DAILY;
     Route: 065
  7. PREDNISONE. [Suspect]
     Active Substance: PREDNISONE
     Dosage: 40 MILLIGRAM DAILY;
     Route: 065
  8. EUCRISA [Suspect]
     Active Substance: CRISABOROLE
     Indication: PRODUCT USED FOR UNKNOWN INDICATION
     Route: 065
  9. RABEPRAZOLE [Suspect]
     Active Substance: RABEPRAZOLE
     Indication: PRODUCT USED FOR UNKNOWN INDICATION
     Dosage: 20 MILLIGRAM DAILY;
     Route: 065
  10. CRISABOROLE [Suspect]
     Active Substance: CRISABOROLE
     Indication: PRODUCT USED FOR UNKNOWN INDICATION
     Route: 065
  11. PREDNISONE. [Suspect]
     Active Substance: PREDNISONE
     Indication: PRODUCT USED FOR UNKNOWN INDICATION
     Dosage: 40 MILLIGRAM DAILY;
     Route: 066

REACTIONS (8)
  - Abdominal discomfort [Unknown]
  - Hepatic enzyme increased [Unknown]
  - Pain in extremity [Unknown]
  - Pruritus [Unknown]
  - Psoriatic arthropathy [Unknown]
  - Drug ineffective [Unknown]
  - Blister [Unknown]
  - Skin injury [Unknown]
